FAERS Safety Report 13611123 (Version 6)
Quarter: 2017Q4

REPORT INFORMATION
  Report Type: Spontaneous
  Country: PT (occurrence: PT)
  Receive Date: 20170605
  Receipt Date: 20171030
  Transmission Date: 20180320
  Serious: Yes (Death, Other)
  Sender: FDA-Public Use
  Company Number: PT-BIOGEN-2017BI00408724

PATIENT
  Age: 39 Year
  Sex: Female

DRUGS (1)
  1. TYSABRI [Suspect]
     Active Substance: NATALIZUMAB
     Indication: MULTIPLE SCLEROSIS
     Route: 065
     Dates: end: 201611

REACTIONS (4)
  - Cardio-respiratory arrest [Fatal]
  - Progressive multifocal leukoencephalopathy [Not Recovered/Not Resolved]
  - Immune reconstitution inflammatory syndrome [Unknown]
  - Multiple sclerosis relapse [Not Recovered/Not Resolved]

NARRATIVE: CASE EVENT DATE: 201610
